FAERS Safety Report 4731882-1 (Version None)
Quarter: 2005Q3

REPORT INFORMATION
  Report Type: 
  Country: None (occurrence: None)
  Receive Date: 20050802
  Receipt Date: 20050802
  Transmission Date: 20060218
  Serious: Yes (Other)
  Sender: FDA-Public Use
  Company Number: None

PATIENT
  Age: 67 Year
  Sex: Female
  Weight: 66.2252 kg

DRUGS (1)
  1. TRIGLIDE [Suspect]
     Indication: BLOOD CHOLESTEROL
     Dosage: 160MG 1 PER DAY ORAL
     Route: 048
     Dates: start: 20050728, end: 20050728

REACTIONS (15)
  - ABDOMINAL DISTENSION [None]
  - BACK PAIN [None]
  - DISTURBANCE IN ATTENTION [None]
  - DIZZINESS [None]
  - GINGIVAL PAIN [None]
  - HYPERHIDROSIS [None]
  - HYPOAESTHESIA [None]
  - LIP DISORDER [None]
  - MUSCULOSKELETAL STIFFNESS [None]
  - PAIN [None]
  - PALPITATIONS [None]
  - POLLAKIURIA [None]
  - SINUS CONGESTION [None]
  - TONGUE DISORDER [None]
  - VISUAL DISTURBANCE [None]
